FAERS Safety Report 12372358 (Version 1)
Quarter: 2016Q2

REPORT INFORMATION
  Report Type: Spontaneous
  Country: US (occurrence: US)
  Receive Date: 20160516
  Receipt Date: 20160516
  Transmission Date: 20160815
  Serious: Yes (Hospitalization)
  Sender: FDA-Public Use
  Company Number: US-TEVA-660660USA

PATIENT
  Age: 57 Year
  Sex: Female

DRUGS (2)
  1. PROPRANOLOL [Suspect]
     Active Substance: PROPRANOLOL\PROPRANOLOL HYDROCHLORIDE
     Indication: CEREBRAL HAEMANGIOMA
     Dates: end: 20141001
  2. PROPRANOLOL [Suspect]
     Active Substance: PROPRANOLOL\PROPRANOLOL HYDROCHLORIDE
     Indication: CEREBRAL HAEMANGIOMA
     Dates: start: 201304

REACTIONS (4)
  - Dyspnoea [Recovering/Resolving]
  - Fall [Unknown]
  - Drug intolerance [Unknown]
  - Exercise tolerance decreased [Recovering/Resolving]
